FAERS Safety Report 19359601 (Version 1)
Quarter: 2021Q2

REPORT INFORMATION
  Report Type: Spontaneous
  Country: KW (occurrence: KW)
  Receive Date: 20210601
  Receipt Date: 20210601
  Transmission Date: 20210717
  Serious: No
  Sender: FDA-Public Use
  Company Number: KW-LUPIN PHARMACEUTICALS INC.-2021-08264

PATIENT
  Age: 9 Year
  Sex: Male
  Weight: 35 kg

DRUGS (6)
  1. METHYLPHENIDATE. [Suspect]
     Active Substance: METHYLPHENIDATE
     Dosage: 36 MILLIGRAM, QD, OSMOTIC?CONTROLLED EXTENDED RELEASE ORAL DELIVERY SYSTEM (ER?OROS)
     Route: 048
  2. METHYLPHENIDATE. [Suspect]
     Active Substance: METHYLPHENIDATE
     Indication: ATTENTION DEFICIT HYPERACTIVITY DISORDER
     Dosage: 18 MILLIGRAM, QD, OSMOTIC?CONTROLLED EXTENDED RELEASE ORAL DELIVERY SYSTEM (ER?OROS), FORMULATION: C
     Route: 048
  3. METHYLPHENIDATE. [Suspect]
     Active Substance: METHYLPHENIDATE
     Dosage: UNK, HIGHER DOSE
     Route: 048
  4. METHYLPHENIDATE. [Suspect]
     Active Substance: METHYLPHENIDATE
     Dosage: 27 MILLIGRAM, QD, OSMOTIC?CONTROLLED EXTENDED RELEASE ORAL DELIVERY SYSTEM (ER?OROS)
     Route: 048
  5. METHYLPHENIDATE. [Suspect]
     Active Substance: METHYLPHENIDATE
     Dosage: 18 MILLIGRAM, QD, OSMOTIC?CONTROLLED EXTENDED RELEASE ORAL DELIVERY SYSTEM (ER?OROS), FORMULATION: C
     Route: 048
  6. METHYLPHENIDATE. [Suspect]
     Active Substance: METHYLPHENIDATE
     Dosage: 27 MILLIGRAM, QD, OSMOTIC?CONTROLLED EXTENDED RELEASE ORAL DELIVERY SYSTEM (ER?OROS)
     Route: 048

REACTIONS (1)
  - Tinnitus [Recovered/Resolved]
